FAERS Safety Report 6220265-3 (Version None)
Quarter: 2009Q2

REPORT INFORMATION
  Report Type: 
  Country: None (occurrence: None)
  Receive Date: 20090605
  Receipt Date: 20090525
  Transmission Date: 20091009
  Serious: Yes (Hospitalization)
  Sender: FDA-Public Use
  Company Number: FR-000307

PATIENT
  Age: 27 Year
  Sex: Female

DRUGS (1)
  1. LUTRELEF /00486502/ (GONADORELIN ACETATE) LOT# BD0696 POWDER AND SOLVE [Suspect]
     Indication: INFERTILITY
     Dosage: SUBCUTANEOUS
     Route: 058
     Dates: start: 20081201, end: 20090523

REACTIONS (1)
  - ANAPHYLACTIC SHOCK [None]
